FAERS Safety Report 16529800 (Version 1)
Quarter: 2019Q3

REPORT INFORMATION
  Report Type: Report from Study
  Country: US (occurrence: US)
  Receive Date: 20190704
  Receipt Date: 20190704
  Transmission Date: 20191004
  Serious: Yes (Hospitalization, Other)
  Sender: FDA-Public Use
  Company Number: US-BRISTOL-MYERS SQUIBB COMPANY-BMS-2019-061120

PATIENT
  Age: 43 Year
  Sex: Female
  Weight: 86.6 kg

DRUGS (2)
  1. NIVOLUMAB [Suspect]
     Active Substance: NIVOLUMAB
     Indication: GENITOURINARY TRACT NEOPLASM
     Dosage: 269 MILLIGRAM, Q3WK
     Route: 042
     Dates: start: 20190516, end: 20190606
  2. IPILIMUMAB [Suspect]
     Active Substance: IPILIMUMAB
     Indication: GENITOURINARY TRACT NEOPLASM
     Dosage: 90 MILLIGRAM, Q3WK
     Route: 042
     Dates: start: 20190516, end: 20190606

REACTIONS (2)
  - Sepsis [Unknown]
  - Immune-mediated hepatitis [Unknown]

NARRATIVE: CASE EVENT DATE: 20190614
